FAERS Safety Report 8018097-9 (Version None)
Quarter: 2011Q4

REPORT INFORMATION
  Report Type: 
  Country: None (occurrence: None)
  Receive Date: 20111228
  Receipt Date: 20111212
  Transmission Date: 20120403
  Serious: Yes (Death)
  Sender: FDA-Public Use
  Company Number: 1000025960

PATIENT

DRUGS (3)
  1. ONDANSETRON (ONDANSETRON) (TABLETS) (ONDANSETRON) [Concomitant]
  2. LEXAPRO [Suspect]
     Dosage: 30 MG (30 MG, 1 IN 1 D), TRANSPLACENTAL
     Route: 064
  3. PHENERGAN (PROMETHAZINE) (TABLETS) (PROMETHAZINE) [Concomitant]

REACTIONS (3)
  - MATERNAL DRUGS AFFECTING FOETUS [None]
  - DEATH NEONATAL [None]
  - PREMATURE BABY [None]
